FAERS Safety Report 24618512 (Version 4)
Quarter: 2025Q3

REPORT INFORMATION
  Report Type: Spontaneous
  Country: US (occurrence: US)
  Receive Date: 20241114
  Receipt Date: 20250814
  Transmission Date: 20251020
  Serious: Yes (Life-Threatening, Hospitalization, Other)
  Sender: ALEXION PHARMACEUTICALS
  Company Number: US-AstraZeneca-CH-00739069A

PATIENT
  Age: 49 Year
  Sex: Male
  Weight: 105.23 kg

DRUGS (1)
  1. FARXIGA [Suspect]
     Active Substance: DAPAGLIFLOZIN PROPANEDIOL
     Indication: Renal impairment
     Dosage: 10 MILLIGRAM, QD
     Dates: start: 20240518, end: 20240611

REACTIONS (8)
  - Fournier^s gangrene [Not Recovered/Not Resolved]
  - Quality of life decreased [Unknown]
  - Emotional disorder [Unknown]
  - Mobility decreased [Unknown]
  - Weight decreased [Unknown]
  - Muscle atrophy [Unknown]
  - Memory impairment [Unknown]
  - Asthenia [Unknown]

NARRATIVE: CASE EVENT DATE: 20240611
